FAERS Safety Report 19844768 (Version 1)
Quarter: 2021Q3

REPORT INFORMATION
  Report Type: Spontaneous
  Country: US (occurrence: US)
  Receive Date: 20210916
  Receipt Date: 20210916
  Transmission Date: 20211014
  Serious: No
  Sender: FDA-Public Use
  Company Number: None

PATIENT
  Age: 80 Year
  Sex: Female

DRUGS (1)
  1. CAPECITABINE TAB 500MG [Suspect]
     Active Substance: CAPECITABINE
     Route: 048
     Dates: start: 20210906

REACTIONS (4)
  - Therapy interrupted [None]
  - Off label use [None]
  - Hypophagia [None]
  - Decreased appetite [None]

NARRATIVE: CASE EVENT DATE: 20210906
